FAERS Safety Report 6414969-7 (Version None)
Quarter: 2009Q4

REPORT INFORMATION
  Report Type: 
  Country: None (occurrence: None)
  Receive Date: 20091026
  Receipt Date: 20090713
  Transmission Date: 20100525
  Serious: No
  Sender: FDA-Public Use
  Company Number: US-ABBOTT-09P-163-0585216-00

PATIENT
  Sex: Female
  Weight: 65.83 kg

DRUGS (1)
  1. LUPRON DEPOT [Suspect]
     Indication: ENDOMETRIOSIS
     Route: 050
     Dates: start: 20090301

REACTIONS (4)
  - ALOPECIA [None]
  - DRUG DOSE OMISSION [None]
  - MENSTRUATION DELAYED [None]
  - NAUSEA [None]
